FAERS Safety Report 21212846 (Version 5)
Quarter: 2022Q4

REPORT INFORMATION
  Report Type: Spontaneous
  Country: US (occurrence: US)
  Receive Date: 20220815
  Receipt Date: 20221229
  Transmission Date: 20230113
  Serious: Yes (Hospitalization, Other)
  Sender: FDA-Public Use
  Company Number: US-Accord-272504

PATIENT
  Age: 78 Year
  Sex: Female
  Weight: 87.10 kg

DRUGS (48)
  1. GEMCITABINE HYDROCHLORIDE [Suspect]
     Active Substance: GEMCITABINE HYDROCHLORIDE
     Indication: Diffuse large B-cell lymphoma stage III
     Dosage: 1Q2W
     Route: 042
     Dates: start: 20220706
  2. OXALIPLATIN [Suspect]
     Active Substance: OXALIPLATIN
     Indication: Diffuse large B-cell lymphoma stage III
     Dosage: 1Q2W
     Route: 042
     Dates: start: 20220706
  3. EPCORITAMAB [Suspect]
     Active Substance: EPCORITAMAB
     Indication: Diffuse large B-cell lymphoma stage III
     Dosage: PRIMING DOSE, SINGLE
     Route: 058
     Dates: start: 20220706, end: 20220706
  4. DIPHENHYDRAMINE [Concomitant]
     Active Substance: DIPHENHYDRAMINE
     Indication: Premedication
     Route: 042
     Dates: start: 20220706, end: 20220706
  5. ACETAMINOPHEN [Concomitant]
     Active Substance: ACETAMINOPHEN
     Indication: Premedication
     Route: 048
     Dates: start: 20220606, end: 20220606
  6. PREDNISONE [Concomitant]
     Active Substance: PREDNISONE
     Indication: Prophylaxis
     Route: 048
     Dates: start: 20220706, end: 20220709
  7. DEXAMETHASONE [Concomitant]
     Active Substance: DEXAMETHASONE
     Indication: Prophylaxis
     Dosage: 10 MG AND 6 MG ONCE
     Route: 042
     Dates: start: 20220706, end: 20220725
  8. ASPIRIN [Concomitant]
     Active Substance: ASPIRIN
     Dates: start: 20220520
  9. LIPITOR [Concomitant]
     Active Substance: ATORVASTATIN CALCIUM
     Dates: start: 20140224
  10. LOTENSIN [Concomitant]
     Active Substance: BENAZEPRIL HYDROCHLORIDE
     Dates: start: 2014
  11. PLAVIX [Concomitant]
     Active Substance: CLOPIDOGREL BISULFATE
     Dates: start: 2014
  12. COENZYME Q10 [Concomitant]
     Active Substance: DIETARY SUPPLEMENT\UBIDECARENONE
     Dates: start: 2014
  13. COLACE [Concomitant]
     Active Substance: DOCUSATE SODIUM
     Dates: start: 2014
  14. LASIX [Concomitant]
     Active Substance: FUROSEMIDE
     Dates: start: 2014
  15. PREVACID [Concomitant]
     Active Substance: LANSOPRAZOLE
     Dates: start: 2014
  16. METOPROLOL [Concomitant]
     Active Substance: METOPROLOL
     Dates: start: 2014
  17. MINERALS NOS [Concomitant]
     Active Substance: MINERALS
     Dates: start: 2014
  18. FISH OIL [Concomitant]
     Active Substance: FISH OIL
     Dates: start: 2014
  19. ZETIA [Concomitant]
     Active Substance: EZETIMIBE
     Dates: start: 2014
  20. AMBIEN [Concomitant]
     Active Substance: ZOLPIDEM TARTRATE
     Dates: start: 2014
  21. ONDANSETRON [Concomitant]
     Active Substance: ONDANSETRON
     Dates: start: 20220720
  22. MAGNESIUM [Concomitant]
     Active Substance: MAGNESIUM
     Dates: start: 20220720
  23. POTASSIUM CHLORIDE [Concomitant]
     Active Substance: POTASSIUM CHLORIDE
     Dates: start: 20220720
  24. BENZONATATE [Concomitant]
     Active Substance: BENZONATATE
     Dates: start: 20220721
  25. MENTHOL [Concomitant]
     Active Substance: MENTHOL
     Dates: start: 20220721
  26. ALBUMIN HUMAN [Concomitant]
     Active Substance: ALBUMIN HUMAN
     Dates: start: 20220722, end: 20220722
  27. CEFEPIME [Concomitant]
     Active Substance: CEFEPIME HYDROCHLORIDE
     Dates: start: 20220722, end: 20220723
  28. VANCOMYCIN [Concomitant]
     Active Substance: VANCOMYCIN
     Dates: start: 20220722, end: 20220722
  29. SODIUM CHLORIDE [Concomitant]
     Active Substance: SODIUM CHLORIDE
     Dosage: 0.9 PERCENT
     Dates: start: 20220722, end: 20220722
  30. ALLOPURINOL [Concomitant]
     Active Substance: ALLOPURINOL
     Dates: start: 20220722, end: 20220722
  31. PANTOPRAZOLE [Concomitant]
     Active Substance: PANTOPRAZOLE
     Dates: start: 20220722, end: 20220723
  32. CEFTRIAXONE [Concomitant]
     Active Substance: CEFTRIAXONE
     Dates: start: 20220724, end: 20220724
  33. DEXTROSE [Concomitant]
     Active Substance: DEXTROSE
     Dosage: 5 PERCENT
     Dates: start: 20220724, end: 20220724
  34. KEPPRA [Concomitant]
     Active Substance: LEVETIRACETAM
     Dates: start: 20220725, end: 20220725
  35. ALOXI [Concomitant]
     Active Substance: PALONOSETRON HYDROCHLORIDE
     Dates: start: 20220706, end: 20220706
  36. EPCORITAMAB [Suspect]
     Active Substance: EPCORITAMAB
     Indication: Diffuse large B-cell lymphoma stage III
     Dosage: INTERMEDIATE DOSE, SINGLE
     Route: 058
     Dates: start: 20220713, end: 20220713
  37. DEXAMETHASONE [Concomitant]
     Active Substance: DEXAMETHASONE
     Indication: Prophylaxis
     Dosage: 15MG, ONCE
     Route: 042
     Dates: start: 20220713
  38. DEXAMETHASONE [Concomitant]
     Active Substance: DEXAMETHASONE
     Indication: Prophylaxis
     Dosage: 10MG, Q12H
     Route: 042
     Dates: start: 20220720, end: 20220721
  39. DEXAMETHASONE [Concomitant]
     Active Substance: DEXAMETHASONE
     Indication: Prophylaxis
     Dosage: 10MG, BID
     Route: 042
     Dates: start: 20220722, end: 20220725
  40. ACETAMINOPHEN [Concomitant]
     Active Substance: ACETAMINOPHEN
     Dates: start: 20220720, end: 20220720
  41. EPCORITAMAB [Suspect]
     Active Substance: EPCORITAMAB
     Indication: Diffuse large B-cell lymphoma stage III
     Dosage: FULL DOSE, WEEKLY
     Route: 058
     Dates: start: 20220720
  42. GEMCITABINE HYDROCHLORIDE [Suspect]
     Active Substance: GEMCITABINE HYDROCHLORIDE
     Indication: Diffuse large B-cell lymphoma stage III
     Dosage: 1Q2W
     Route: 042
     Dates: start: 20220720
  43. OXALIPLATIN [Suspect]
     Active Substance: OXALIPLATIN
     Indication: Diffuse large B-cell lymphoma stage III
     Dosage: 1Q2W
     Route: 042
     Dates: start: 20220720
  44. PREDNISONE [Concomitant]
     Active Substance: PREDNISONE
     Indication: Prophylaxis
     Dosage: TWICE
     Route: 048
     Dates: start: 20220720, end: 20220723
  45. PREDNISONE [Concomitant]
     Active Substance: PREDNISONE
     Indication: Prophylaxis
     Dosage: QD
     Route: 048
     Dates: start: 20220713, end: 20220716
  46. ACETAMINOPHEN [Concomitant]
     Active Substance: ACETAMINOPHEN
     Indication: Premedication
     Route: 048
     Dates: start: 20220713, end: 20220713
  47. DIPHENHYDRAMINE [Concomitant]
     Active Substance: DIPHENHYDRAMINE
     Indication: Premedication
     Route: 042
     Dates: start: 20220713, end: 20220713
  48. DIPHENHYDRAMINE [Concomitant]
     Active Substance: DIPHENHYDRAMINE
     Indication: Premedication
     Route: 042
     Dates: start: 20220720, end: 20220720

REACTIONS (1)
  - Cytokine release syndrome [Recovered/Resolved]

NARRATIVE: CASE EVENT DATE: 20220720
